FAERS Safety Report 15565736 (Version 1)
Quarter: 2018Q4

REPORT INFORMATION
  Report Type: Spontaneous
  Country: US (occurrence: US)
  Receive Date: 20181030
  Receipt Date: 20181030
  Transmission Date: 20190205
  Serious: Yes (Other)
  Sender: FDA-Public Use
  Company Number: US-BAYER-2018-201141

PATIENT
  Age: 34 Year
  Sex: Female

DRUGS (1)
  1. MIRENA [Suspect]
     Active Substance: LEVONORGESTREL
     Dosage: 20 MCG/24HR, CONT
     Route: 015
     Dates: start: 20160909, end: 20170508

REACTIONS (5)
  - Headache [None]
  - Hypoaesthesia [None]
  - Intracranial pressure increased [None]
  - Paraesthesia [None]
  - Vision blurred [None]

NARRATIVE: CASE EVENT DATE: 20170630
